FAERS Safety Report 5446619-0 (Version None)
Quarter: 2007Q3

REPORT INFORMATION
  Report Type: 
  Country: None (occurrence: None)
  Receive Date: 20070907
  Receipt Date: 20070829
  Transmission Date: 20080115
  Serious: Yes (Hospitalization, Other)
  Sender: FDA-Public Use
  Company Number: US-PFIZER INC-2007044002

PATIENT
  Sex: Male
  Weight: 108.9 kg

DRUGS (2)
  1. CELEBREX [Suspect]
     Dates: start: 20010702, end: 20011226
  2. BEXTRA [Suspect]
     Route: 048
     Dates: start: 20040101, end: 20041101

REACTIONS (3)
  - CARDIOVASCULAR DISORDER [None]
  - CEREBROVASCULAR ACCIDENT [None]
  - DEPRESSION [None]
